FAERS Safety Report 11251693 (Version 1)
Quarter: 2015Q3

REPORT INFORMATION
  Report Type: Spontaneous
  Country: US (occurrence: US)
  Receive Date: 20150708
  Receipt Date: 20150708
  Transmission Date: 20151125
  Serious: No
  Sender: FDA-Public Use
  Company Number: US-ELI_LILLY_AND_COMPANY-US201206000324

PATIENT
  Sex: Female

DRUGS (1)
  1. ALIMTA [Suspect]
     Active Substance: PEMETREXED DISODIUM

REACTIONS (4)
  - Blood test abnormal [Unknown]
  - Movement disorder [Unknown]
  - Diarrhoea [Unknown]
  - Malaise [Unknown]
